FAERS Safety Report 10422308 (Version 3)
Quarter: 2014Q3

REPORT INFORMATION
  Report Type: Spontaneous
  Country: AU (occurrence: AU)
  Receive Date: 20140901
  Receipt Date: 20140925
  Transmission Date: 20150326
  Serious: Yes (Hospitalization)
  Sender: FDA-Public Use
  Company Number: AU-009507513-1407AUS004570

PATIENT
  Age: 66 Year
  Sex: Male
  Weight: 121 kg

DRUGS (7)
  1. ATOZET COMPOSITE PACK [Suspect]
     Active Substance: ATORVASTATIN CALCIUM\EZETIMIBE
     Dosage: UNK
     Route: 048
     Dates: start: 20140514, end: 20140701
  2. OSTEVIT D [Concomitant]
     Dosage: 1 DF, QD
     Route: 048
  3. DIABEX [Concomitant]
     Active Substance: METFORMIN HYDROCHLORIDE
     Dosage: 2 DF, HS; 2 NOCTE C.C
     Route: 048
  4. NORMACOL (STERCULIA) [Concomitant]
     Dosage: STRENGHT: 620-80 MG/G; 1 TEASP DAILY
     Route: 048
  5. OMEPRAZOLE. [Concomitant]
     Active Substance: OMEPRAZOLE
  6. ALLOPURINOL. [Concomitant]
     Active Substance: ALLOPURINOL
     Dosage: 1 DF, QD; 1 DAILY
     Route: 048
  7. PANAMAX [Concomitant]
     Active Substance: ACETAMINOPHEN
     Dosage: 1 OR 2; Q6H; PRN

REACTIONS (3)
  - Acarodermatitis [Not Recovered/Not Resolved]
  - Urticaria [Recovering/Resolving]
  - Drug hypersensitivity [Unknown]

NARRATIVE: CASE EVENT DATE: 2014
